FAERS Safety Report 6304229-7 (Version None)
Quarter: 2009Q3

REPORT INFORMATION
  Report Type: 
  Country: None (occurrence: None)
  Receive Date: 20090811
  Receipt Date: 20090730
  Transmission Date: 20100115
  Serious: Yes (Hospitalization, Other)
  Sender: FDA-Public Use
  Company Number: US-JNJFOC-20090709977

PATIENT
  Sex: Male
  Weight: 87.54 kg

DRUGS (8)
  1. REMICADE [Suspect]
     Dosage: @ 3MG/KG
  2. REMICADE [Suspect]
     Dosage: @ 3MG/KG
  3. REMICADE [Suspect]
     Indication: RHEUMATOID ARTHRITIS
     Dosage: @3MG/KG
  4. IBUPROFEN [Concomitant]
  5. NORVASC [Concomitant]
  6. SOLU-CORTEF [Concomitant]
     Route: 050
  7. SPORANOX [Concomitant]
  8. ZESTRIL [Concomitant]

REACTIONS (5)
  - ARTHRALGIA [None]
  - GRANULOMATOUS LIVER DISEASE [None]
  - HISTOPLASMOSIS DISSEMINATED [None]
  - JOINT SWELLING [None]
  - RENAL FAILURE ACUTE [None]
